FAERS Safety Report 6686994-2 (Version None)
Quarter: 2010Q2

REPORT INFORMATION
  Report Type: 
  Country: None (occurrence: None)
  Receive Date: 20100419
  Receipt Date: 20100407
  Transmission Date: 20101027
  Serious: Yes (Other)
  Sender: FDA-Public Use
  Company Number: US-PFIZER INC-2010044236

PATIENT
  Sex: Female
  Weight: 93.4 kg

DRUGS (1)
  1. DILANTIN [Suspect]
     Indication: CONVULSION
     Dosage: 330 MG, 1X/DAY
     Route: 048
     Dates: start: 20090801

REACTIONS (3)
  - BRADYPHRENIA [None]
  - DYSKINESIA [None]
  - MEMORY IMPAIRMENT [None]
